FAERS Safety Report 8267289-2 (Version None)
Quarter: 2012Q2

REPORT INFORMATION
  Report Type: 
  Country: None (occurrence: None)
  Receive Date: 20120409
  Receipt Date: 20120327
  Transmission Date: 20120825
  Serious: Yes (Other)
  Sender: FDA-Public Use
  Company Number: US-ASTELLAS-2012US002599

PATIENT
  Sex: Female

DRUGS (4)
  1. VESICARE [Suspect]
     Dosage: 5 MG, UID/QD
     Route: 048
  2. VESICARE [Suspect]
     Indication: URINARY INCONTINENCE
     Dosage: 10 MG, UID/QD
     Route: 048
     Dates: start: 20100501, end: 20100901
  3. VESICARE [Suspect]
     Dosage: 20 MG, UID/QD
     Route: 048
     Dates: start: 20100901
  4. VESICARE [Suspect]
     Indication: POLLAKIURIA
     Dosage: 10 MG, UID/QD
     Route: 048
     Dates: start: 20080101, end: 20090101

REACTIONS (2)
  - MULTIPLE SCLEROSIS [None]
  - OVERDOSE [None]
